FAERS Safety Report 9117940 (Version 1)
Quarter: 2013Q1

REPORT INFORMATION
  Report Type: Spontaneous
  Country: US (occurrence: US)
  Receive Date: 20130225
  Receipt Date: 20130225
  Transmission Date: 20140127
  Serious: Yes (Other)
  Sender: FDA-Public Use
  Company Number: CHPA2013US003291

PATIENT
  Age: 51 Year
  Sex: Female

DRUGS (3)
  1. PRIVATE LABEL [Suspect]
     Indication: SMOKING CESSATION THERAPY
     Dosage: UNK, UNK
     Route: 062
  2. CHANTIX [Suspect]
     Indication: SMOKING CESSATION THERAPY
     Dosage: UNK, UNK
     Route: 065
  3. NICODERM [Concomitant]
     Indication: SMOKING CESSATION THERAPY
     Dosage: 21 MG, UNK
     Route: 062
     Dates: start: 20130218

REACTIONS (10)
  - Diabetes mellitus [Unknown]
  - Intervertebral disc protrusion [Unknown]
  - Nightmare [Unknown]
  - Abdominal discomfort [Unknown]
  - Nervousness [Unknown]
  - Dyspnoea [Unknown]
  - Headache [Unknown]
  - Cough [Unknown]
  - Disturbance in attention [Unknown]
  - Dizziness [Unknown]
